FAERS Safety Report 6239235-4 (Version None)
Quarter: 2009Q2

REPORT INFORMATION
  Report Type: 
  Country: None (occurrence: None)
  Receive Date: 20090617
  Receipt Date: 20080220
  Transmission Date: 20091009
  Serious: No
  Sender: FDA-Public Use
  Company Number: 272966

PATIENT
  Age: 51 Year
  Sex: Female

DRUGS (3)
  1. LEVEMIR [Suspect]
     Indication: INSULIN-REQUIRING TYPE 2 DIABETES MELLITUS
     Dosage: 15 IU, QD, SUBCUTANEOUS
     Route: 058
  2. HYDROCHLOROTHIAZIDE [Concomitant]
  3. METFORMIN HCL [Concomitant]

REACTIONS (3)
  - MALAISE [None]
  - TACHYCARDIA [None]
  - WEIGHT DECREASED [None]
